FAERS Safety Report 9189447 (Version 3)
Quarter: 2013Q2

REPORT INFORMATION
  Report Type: Spontaneous
  Country: US (occurrence: None)
  Receive Date: 20130322
  Receipt Date: 20130508
  Transmission Date: 20140414
  Serious: Yes (Hospitalization)
  Sender: FDA-Public Use
  Company Number: 130087

PATIENT
  Age: 56 Year
  Sex: Female
  Weight: 56.25 kg

DRUGS (2)
  1. SUPREP BOWEL PREP KIT [Suspect]
     Indication: COLONOSCOPY
     Dosage: }0.5 X 6 OZ. BOTTLE/1X/PO
     Route: 048
     Dates: start: 20130310
  2. ATENOLOL [Concomitant]

REACTIONS (6)
  - Erythema [None]
  - Blood pressure increased [None]
  - Tremor [None]
  - Headache [None]
  - Eye swelling [None]
  - Diarrhoea [None]
